FAERS Safety Report 15575723 (Version 5)
Quarter: 2023Q1

REPORT INFORMATION
  Report Type: Spontaneous
  Country: PL (occurrence: PL)
  Receive Date: 20181101
  Receipt Date: 20230303
  Transmission Date: 20230417
  Serious: Yes (Hospitalization, Other)
  Sender: FDA-Public Use
  Company Number: PL-ASTRAZENECA-2018SE72333

PATIENT
  Age: 76 Year
  Sex: Female

DRUGS (14)
  1. FORMOTEROL [Suspect]
     Active Substance: FORMOTEROL
     Indication: Chronic obstructive pulmonary disease
     Dosage: 12 MICROGRAM, QD
     Route: 055
  2. AMOXICILLIN\CLAVULANIC ACID [Suspect]
     Active Substance: AMOXICILLIN\CLAVULANIC ACID
     Indication: Infective exacerbation of chronic obstructive airways disease
     Dosage: 1.2 GRAM, Q8H
     Route: 042
  3. BUDESONIDE [Suspect]
     Active Substance: BUDESONIDE
     Indication: Chronic obstructive pulmonary disease
     Dosage: UNK
     Route: 055
  4. ALBUTEROL [Suspect]
     Active Substance: ALBUTEROL
     Indication: Chronic obstructive pulmonary disease
     Dosage: UNK , QD (18 AG ONCE DAILY)
     Route: 055
  5. ALBUTEROL [Suspect]
     Active Substance: ALBUTEROL
     Indication: Infective exacerbation of chronic obstructive airways disease
     Dosage: UNK UNK, PRN
     Route: 055
  6. OLODATEROL [Suspect]
     Active Substance: OLODATEROL
     Indication: Chronic obstructive pulmonary disease
     Dosage: UNK
     Route: 055
  7. OXYGEN [Suspect]
     Active Substance: OXYGEN
     Indication: Infective exacerbation of chronic obstructive airways disease
     Dosage: UNK,2 L/MINFLOW
     Route: 065
  8. PREDNISONE [Suspect]
     Active Substance: PREDNISONE
     Indication: Infective exacerbation of chronic obstructive airways disease
     Dosage: 40 MILLIGRAM, QD
     Route: 048
  9. IPRATROPIUM BROMIDE [Suspect]
     Active Substance: IPRATROPIUM BROMIDE
     Indication: Infective exacerbation of chronic obstructive airways disease
     Dosage: UNK
     Route: 065
  10. TIOTROPIUM [Concomitant]
     Active Substance: TIOTROPIUM
     Indication: Chronic obstructive pulmonary disease
     Dosage: 18 MICROGRAM, QD, (18 AG ONCE DAILY)
     Route: 055
  11. VALSARTAN [Concomitant]
     Active Substance: VALSARTAN
     Indication: Hypertension
     Dosage: 80 MG, QD
     Route: 065
  12. NEBIVOLOL [Concomitant]
     Active Substance: NEBIVOLOL
     Indication: Hypertension
     Dosage: 5 MG, QD
     Route: 065
  13. NEBIVOLOL [Concomitant]
     Active Substance: NEBIVOLOL
     Dosage: 5 MG, UNKNOWN FREQ.
     Route: 065
  14. AMLODIPINE [Concomitant]
     Active Substance: AMLODIPINE BESYLATE
     Indication: Hypertension
     Dosage: 5 MG, QD
     Route: 065

REACTIONS (6)
  - Infective exacerbation of chronic obstructive airways disease [Not Recovered/Not Resolved]
  - Therapeutic response decreased [Unknown]
  - Respiratory failure [Recovering/Resolving]
  - Pulmonary hypertension [Not Recovered/Not Resolved]
  - Chronic obstructive pulmonary disease [Not Recovered/Not Resolved]
  - Dyspnoea [Not Recovered/Not Resolved]
